FAERS Safety Report 5089112-X (Version None)
Quarter: 2006Q3

REPORT INFORMATION
  Report Type: 
  Country: None (occurrence: None)
  Receive Date: 20060727
  Receipt Date: 20060627
  Transmission Date: 20061208
  Serious: Yes (Other)
  Sender: FDA-Public Use
  Company Number: 2006082698

PATIENT
  Sex: Male

DRUGS (4)
  1. LYRICA [Suspect]
     Indication: DRUG USE FOR UNKNOWN INDICATION
  2. NEURONTIN [Suspect]
     Indication: DRUG USE FOR UNKNOWN INDICATION
  3. ACTOS [Concomitant]
  4. ALL OTHER THERAPEUTIC PRODUCTS (ALL OTHER THERAPEUTIC PRODUCTS) [Concomitant]

REACTIONS (2)
  - CREATININE RENAL CLEARANCE INCREASED [None]
  - RASH [None]
